FAERS Safety Report 15499464 (Version 1)
Quarter: 2018Q4

REPORT INFORMATION
  Report Type: Spontaneous
  Country: US (occurrence: US)
  Receive Date: 20181015
  Receipt Date: 20181015
  Transmission Date: 20190205
  Serious: No
  Sender: FDA-Public Use
  Company Number: US-PFIZER INC-2018411350

PATIENT
  Age: 56 Year
  Sex: Female

DRUGS (1)
  1. GABAPENTIN. [Suspect]
     Active Substance: GABAPENTIN
     Dosage: UNK UNK, DAILY(QTY 30 / DAYS^ SUPPLY 30)

REACTIONS (3)
  - Weight increased [Unknown]
  - Autoscopy [Unknown]
  - Feeling abnormal [Unknown]
